FAERS Safety Report 23218560 (Version 2)
Quarter: 2024Q1

REPORT INFORMATION
  Report Type: Spontaneous
  Country: DE (occurrence: DE)
  Receive Date: 20231122
  Receipt Date: 20240229
  Transmission Date: 20240410
  Serious: Yes (Hospitalization, Other)
  Sender: FDA-Public Use
  Company Number: DE-UCBSA-2023052569

PATIENT
  Age: 78 Year
  Sex: Female
  Weight: 42 kg

DRUGS (5)
  1. IBANDRONIC ACID [Suspect]
     Active Substance: IBANDRONIC ACID
     Indication: Osteoporotic fracture
     Dosage: 3 MILLIGRAM, 3 MONTH (3 MILLIGRAM, EV 3 MONTHS)
     Route: 042
     Dates: start: 202206, end: 202305
  2. ROMOSOZUMAB [Suspect]
     Active Substance: ROMOSOZUMAB
     Indication: Osteoporotic fracture
     Dosage: 210 MILLIGRAM, MONTHLY
     Route: 058
     Dates: start: 20210727, end: 20220527
  3. VITAMIN D3 [Concomitant]
     Active Substance: CHOLECALCIFEROL
     Indication: Nutritional supplementation
     Dosage: 1000 INTERNATIONAL UNIT
     Route: 065
  4. SERTRALINE [Concomitant]
     Active Substance: SERTRALINE HYDROCHLORIDE
     Indication: Product used for unknown indication
     Dosage: 50 MILLIGRAM
     Route: 065
     Dates: start: 20231104
  5. MIRTAZAPINE [Concomitant]
     Active Substance: MIRTAZAPINE
     Indication: Product used for unknown indication
     Dosage: 7.5 MILLIGRAM
     Route: 065

REACTIONS (13)
  - Pelvic fracture [Recovered/Resolved]
  - Fall [Recovered/Resolved]
  - Thoracic vertebral fracture [Recovered/Resolved]
  - Fractured sacrum [Recovered/Resolved]
  - Spinal operation [Recovered/Resolved]
  - Vertebroplasty [Recovered/Resolved]
  - Groin pain [Recovered/Resolved]
  - Internal fixation of fracture [Recovered/Resolved]
  - Open reduction of fracture [Recovered/Resolved]
  - Spondylolisthesis [Unknown]
  - Body height decreased [Unknown]
  - Dizziness [Unknown]
  - Drug ineffective [Unknown]

NARRATIVE: CASE EVENT DATE: 20230101
